FAERS Safety Report 16704279 (Version 3)
Quarter: 2019Q4

REPORT INFORMATION
  Report Type: Spontaneous
  Country: FR (occurrence: FR)
  Receive Date: 20190814
  Receipt Date: 20191209
  Transmission Date: 20200122
  Serious: Yes (Other)
  Sender: FDA-Public Use
  Company Number: FR-TAKEDA-2019TUS047952

PATIENT
  Age: 69 Year
  Sex: Male

DRUGS (3)
  1. NINLARO [Suspect]
     Active Substance: IXAZOMIB CITRATE
     Indication: PLASMA CELL MYELOMA
     Dosage: 3 MILLIGRAM
     Route: 065
     Dates: start: 2018
  2. NINLARO [Suspect]
     Active Substance: IXAZOMIB CITRATE
     Dosage: 2.3 UNK
     Route: 065
  3. REVLIMID [Suspect]
     Active Substance: LENALIDOMIDE
     Indication: PLASMA CELL MYELOMA
     Dosage: 15 MILLIGRAM
     Route: 065
     Dates: start: 2018

REACTIONS (10)
  - Haemoglobin decreased [Unknown]
  - Light chain analysis decreased [Unknown]
  - Red blood cell count decreased [Unknown]
  - Pancytopenia [Not Recovered/Not Resolved]
  - Platelet count decreased [Unknown]
  - Protein total decreased [Unknown]
  - Lymphocyte count decreased [Unknown]
  - Mean cell volume decreased [Unknown]
  - Immunoglobulins decreased [Unknown]
  - Haematocrit decreased [Unknown]

NARRATIVE: CASE EVENT DATE: 201907
